FAERS Safety Report 17254737 (Version 1)
Quarter: 2020Q1

REPORT INFORMATION
  Report Type: Spontaneous
  Country: US (occurrence: US)
  Receive Date: 20200109
  Receipt Date: 20200109
  Transmission Date: 20200409
  Serious: Yes (Other)
  Sender: FDA-Public Use
  Company Number: US-ELI_LILLY_AND_COMPANY-US202001001697

PATIENT
  Age: 58 Year
  Sex: Male

DRUGS (1)
  1. BASAGLAR [Suspect]
     Active Substance: INSULIN GLARGINE
     Indication: PRODUCT USED FOR UNKNOWN INDICATION
     Dosage: UNK, UNKNOWN
     Route: 058

REACTIONS (8)
  - Escherichia urinary tract infection [Recovered/Resolved]
  - Mental disorder [Unknown]
  - Prostatic disorder [Unknown]
  - Seizure [Unknown]
  - Overweight [Unknown]
  - Balance disorder [Unknown]
  - Urinary incontinence [Unknown]
  - Fall [Unknown]
